FAERS Safety Report 7428539-5 (Version None)
Quarter: 2011Q2

REPORT INFORMATION
  Report Type: 
  Country: None (occurrence: None)
  Receive Date: 20110421
  Receipt Date: 20110413
  Transmission Date: 20111010
  Serious: Yes (Other)
  Sender: FDA-Public Use
  Company Number: US-ASTRAZENECA-2009UW04340

PATIENT
  Age: 47 Year
  Sex: Female

DRUGS (8)
  1. SEROQUEL [Suspect]
     Indication: DEPRESSION
     Route: 048
     Dates: start: 20020101, end: 20060101
  2. LYRICA [Concomitant]
     Dates: start: 20060101
  3. SEROQUEL [Suspect]
     Indication: BIPOLAR I DISORDER
     Route: 048
     Dates: start: 20020101, end: 20060101
  4. ALBUTEROL [Concomitant]
     Dosage: 17 GM USE UTD
     Dates: start: 20030107
  5. ELAVIL [Concomitant]
     Dates: end: 20060504
  6. SEROQUEL [Suspect]
     Route: 048
     Dates: start: 20030513
  7. SEROQUEL [Suspect]
     Route: 048
     Dates: start: 20030513
  8. CHLORDIAZEPOXIDE HCL W/ CLIDINIUM BROMIDE [Concomitant]
     Indication: IRRITABLE BOWEL SYNDROME
     Dosage: TK 1 C PO TID
     Route: 048
     Dates: start: 20021112

REACTIONS (2)
  - TYPE 2 DIABETES MELLITUS [None]
  - NEUROPATHY PERIPHERAL [None]
